FAERS Safety Report 9261338 (Version 1)
Quarter: 2013Q2

REPORT INFORMATION
  Report Type: Report from Study
  Country: JP (occurrence: JP)
  Receive Date: 20130429
  Receipt Date: 20130429
  Transmission Date: 20140414
  Serious: Yes (Death)
  Sender: FDA-Public Use
  Company Number: JP-BAYER-2013-050464

PATIENT
  Age: 64 Year
  Sex: Female

DRUGS (3)
  1. LOW DOSE ASPIRIN [Suspect]
  2. RANITIDINE [Suspect]
     Dosage: 75 MG, UNK
  3. CLOPIDOGREL [Concomitant]

REACTIONS (1)
  - Upper gastrointestinal haemorrhage [Fatal]
